FAERS Safety Report 10763173 (Version 4)
Quarter: 2015Q3

REPORT INFORMATION
  Report Type: Spontaneous
  Country: CA (occurrence: CA)
  Receive Date: 20150204
  Receipt Date: 20150814
  Transmission Date: 20151125
  Serious: Yes (Other)
  Sender: FDA-Public Use
  Company Number: CA-PFIZER INC-2014262744

PATIENT
  Age: 56 Year
  Sex: Male
  Weight: 85 kg

DRUGS (9)
  1. SOMAVERT [Suspect]
     Active Substance: PEGVISOMANT
     Indication: HYPOPITUITARISM
     Dosage: 10 MG, DAILY THE EVENING
     Route: 058
     Dates: start: 20140916
  2. ROSUVASTATIN [Concomitant]
     Active Substance: ROSUVASTATIN
     Indication: BLOOD CHOLESTEROL
     Dosage: 10 MG, 1X/DAY (EVERY NIGHT BEFORE BEDTIME)
     Dates: start: 2010
  3. 60 METROCREME [Concomitant]
     Indication: ROSACEA
     Dosage: 0.75 %, 2X/DAY MORNING AND NIGHT
     Dates: start: 201401
  4. CAL-D 500 [Concomitant]
     Dosage: 500 MG, 2X/DAY AT LUNCH AND SUPPER
  5. CORTISONE [Concomitant]
     Active Substance: CORTISONE\HYDROCORTISONE
     Dosage: 25 MG, 1  IN THE MORNING AND 1/2 A TABLET AT SUPPER, DOUBLE IF INFECTION OR MORE STRESS /ACTIVITIES
  6. ANDRODERM [Concomitant]
     Active Substance: TESTOSTERONE
     Dosage: 5 MG, 1X/DAY
  7. SYNTHROID [Concomitant]
     Active Substance: LEVOTHYROXINE SODIUM
     Dosage: 0.175 MG, 1X/DAY IN THE MORNING
  8. EURO D [Concomitant]
     Dosage: 10000 IU, WEEKLY
     Dates: start: 2012
  9. SOMAVERT [Suspect]
     Active Substance: PEGVISOMANT
     Indication: GROWTH HORMONE DEFICIENCY

REACTIONS (10)
  - Nausea [Recovered/Resolved]
  - Memory impairment [Not Recovered/Not Resolved]
  - Constipation [Recovered/Resolved]
  - Diarrhoea [Recovered/Resolved]
  - Weight decreased [Not Recovered/Not Resolved]
  - Dyspepsia [Not Recovered/Not Resolved]
  - Disturbance in attention [Recovering/Resolving]
  - Dizziness [Recovered/Resolved]
  - Headache [Recovering/Resolving]
  - Product use issue [Unknown]

NARRATIVE: CASE EVENT DATE: 2014
